APPROVED DRUG PRODUCT: PEPCID AC
Active Ingredient: FAMOTIDINE
Strength: 20MG
Dosage Form/Route: TABLET;ORAL
Application: N020325 | Product #002
Applicant: KENVUE BRANDS LLC
Approved: Sep 23, 2003 | RLD: Yes | RS: Yes | Type: OTC